FAERS Safety Report 4560843-0 (Version None)
Quarter: 2005Q1

REPORT INFORMATION
  Report Type: 
  Country: None (occurrence: None)
  Receive Date: 20050121
  Receipt Date: 20050106
  Transmission Date: 20050727
  Serious: Yes (Hospitalization)
  Sender: FDA-Public Use
  Company Number: 2004PK02075

PATIENT
  Age: 68 Year
  Sex: Female
  Weight: 72 kg

DRUGS (1)
  1. NESACAINE [Suspect]
     Indication: ANAESTHESIA
     Dosage: 40 ML DAILY IV
     Route: 042
     Dates: start: 20041123, end: 20041123

REACTIONS (4)
  - COMPARTMENT SYNDROME [None]
  - INJECTION SITE IRRITATION [None]
  - MEDICATION ERROR [None]
  - PHLEBOTHROMBOSIS [None]
